FAERS Safety Report 10025731 (Version 1)
Quarter: 2014Q1

REPORT INFORMATION
  Report Type: Spontaneous
  Country: US (occurrence: None)
  Receive Date: 20140318
  Receipt Date: 20140318
  Transmission Date: 20141002
  Serious: Yes (Other)
  Sender: FDA-Public Use
  Company Number: 2014-00040

PATIENT
  Age: 82 Year
  Sex: Female
  Weight: 51.26 kg

DRUGS (1)
  1. ZICAM EXTREME CONGESTION RELIEF [Suspect]
     Indication: NASAL CONGESTION
     Dosage: SPRAYED NASALLY 6 TIMES DAILY
     Route: 045
     Dates: start: 201310, end: 20130302

REACTIONS (3)
  - Drug ineffective [None]
  - Nasal congestion [None]
  - Condition aggravated [None]
